FAERS Safety Report 7293313-X (Version None)
Quarter: 2011Q1

REPORT INFORMATION
  Report Type: 
  Country: None (occurrence: None)
  Receive Date: 20110215
  Receipt Date: 20110210
  Transmission Date: 20110831
  Serious: Yes (Life-Threatening)
  Sender: FDA-Public Use
  Company Number: PHHY2011CH11162

PATIENT
  Age: 60 Year
  Sex: Female

DRUGS (14)
  1. RIVOTRIL [Concomitant]
     Dosage: 0.25 MG, QD
  2. CLOPIN ECO [Suspect]
     Indication: SCHIZOPHRENIA, PARANOID TYPE
     Dosage: 12.5 MG, QD
     Route: 048
     Dates: start: 20101123, end: 20101123
  3. LYRICA [Interacting]
     Indication: POLYNEUROPATHY
     Dosage: 150 MG, BID
     Dates: start: 20100601, end: 20101122
  4. LYRICA [Interacting]
     Dosage: 75 MG, BID
     Route: 048
     Dates: start: 20101123, end: 20101128
  5. NEXIUM [Concomitant]
     Dosage: 40 MG, QD
  6. ARIXTRA [Concomitant]
     Dosage: 2.5 MG, QD
  7. LYRICA [Interacting]
     Dosage: 25 MG, BID
     Route: 048
     Dates: start: 20101129, end: 20101205
  8. FOLIC ACID [Concomitant]
     Dosage: 5 MG, QD
  9. TENORMIN [Interacting]
     Indication: TACHYCARDIA
     Dosage: 25 MG, UNK
     Route: 048
     Dates: start: 20100501, end: 20101123
  10. REDOXAN [Concomitant]
     Dosage: 1 G, BID
  11. BELOC [Concomitant]
     Dosage: 75 MG, QD
  12. DAFALGAN [Concomitant]
     Dosage: 1 G, UNK
  13. RISPERDAL [Interacting]
     Dosage: 3 MG, QD
     Route: 048
     Dates: start: 20100601
  14. ASPIRIN [Concomitant]
     Dosage: 100 MG, QD

REACTIONS (2)
  - DRUG INTERACTION [None]
  - HYPERTENSIVE CRISIS [None]
